FAERS Safety Report 4533131-6 (Version None)
Quarter: 2004Q4

REPORT INFORMATION
  Report Type: 
  Country: None (occurrence: None)
  Receive Date: 20041206
  Receipt Date: 20041014
  Transmission Date: 20050328
  Serious: No
  Sender: FDA-Public Use
  Company Number: USA041081137

PATIENT
  Age: 46 Year
  Sex: Female
  Weight: 68 kg

DRUGS (1)
  1. CYMBALTA (DULOXETINE HYDROCHLORIDE) [Suspect]
     Indication: DEPRESSION
     Dosage: 60 MG
     Dates: start: 20041011

REACTIONS (3)
  - BODY TEMPERATURE DECREASED [None]
  - COLD SWEAT [None]
  - DYSPEPSIA [None]
